FAERS Safety Report 18493324 (Version 1)
Quarter: 2020Q4

REPORT INFORMATION
  Report Type: Spontaneous
  Country: IT (occurrence: IT)
  Receive Date: 20201112
  Receipt Date: 20201112
  Transmission Date: 20210114
  Serious: Yes (Other)
  Sender: FDA-Public Use
  Company Number: IT-SUN PHARMACEUTICAL INDUSTRIES LTD-2020R1-267283

PATIENT
  Sex: Female
  Weight: 60 kg

DRUGS (5)
  1. VALPROIC ACID. [Suspect]
     Active Substance: VALPROIC ACID
     Indication: SEIZURE
     Dosage: 600 MILLIGRAM, DAILY
     Route: 065
  2. VALPROIC ACID. [Interacting]
     Active Substance: VALPROIC ACID
     Dosage: 10 MILLIGRAM/KILOGRAM, DAILY
     Route: 065
  3. CLOBAZAM. [Concomitant]
     Active Substance: CLOBAZAM
     Indication: SEIZURE
     Dosage: 20 MILLIGRAM, DAILY
     Route: 065
  4. STIRIPENTOL [Concomitant]
     Active Substance: STIRIPENTOL
     Indication: SEIZURE
     Dosage: 2000 MILLIGRAM, DAILY
     Route: 065
  5. CANNABIDIOL [Interacting]
     Active Substance: CANNABIDIOL
     Indication: SEVERE MYOCLONIC EPILEPSY OF INFANCY
     Dosage: 100 MILLIGRAM PER MILLILITRE, UNK
     Route: 048

REACTIONS (4)
  - Drug level increased [Unknown]
  - Thrombocytopenia [Unknown]
  - Drug interaction [Unknown]
  - Hepatic enzyme increased [Unknown]
